FAERS Safety Report 9500748 (Version 1)
Quarter: 2013Q3

REPORT INFORMATION
  Report Type: Spontaneous
  Country: US (occurrence: US)
  Receive Date: 20130905
  Receipt Date: 20130905
  Transmission Date: 20140515
  Serious: Yes (Other)
  Sender: FDA-Public Use
  Company Number: US-SANOFI-AVENTIS-2013SA085733

PATIENT
  Age: 65 Year
  Sex: Male

DRUGS (2)
  1. AUVI-Q [Suspect]
     Indication: HYPERSENSITIVITY
     Route: 065
  2. BENADRYL CD [Concomitant]

REACTIONS (3)
  - Dyspnoea [Recovered/Resolved]
  - Condition aggravated [Recovered/Resolved]
  - Drug ineffective [Unknown]
